FAERS Safety Report 21077851 (Version 9)
Quarter: 2023Q1

REPORT INFORMATION
  Report Type: Report from Study
  Country: CN (occurrence: CN)
  Receive Date: 20220713
  Receipt Date: 20230314
  Transmission Date: 20230418
  Serious: Yes (Other)
  Sender: FDA-Public Use
  Company Number: CN-TAKEDA-2021TUS043962

PATIENT
  Age: 46 Year
  Sex: Female
  Weight: 52 kg

DRUGS (30)
  1. IXAZOMIB [Suspect]
     Active Substance: IXAZOMIB
     Indication: Plasma cell myeloma
     Dosage: 4 MILLIGRAM
     Route: 048
     Dates: start: 20210625
  2. DEXAMETHASONE SODIUM PHOSPHATE [Suspect]
     Active Substance: DEXAMETHASONE SODIUM PHOSPHATE
     Indication: Plasma cell myeloma
     Dosage: 20 MILLIGRAM, 1/WEEK
     Route: 042
     Dates: start: 20210625
  3. DEXAMETHASONE SODIUM PHOSPHATE [Suspect]
     Active Substance: DEXAMETHASONE SODIUM PHOSPHATE
     Dosage: 20 MILLIGRAM
     Route: 042
     Dates: start: 20211211, end: 20211221
  4. DEXAMETHASONE SODIUM PHOSPHATE [Suspect]
     Active Substance: DEXAMETHASONE SODIUM PHOSPHATE
     Dosage: 15 MILLIGRAM, 1/WEEK
     Route: 042
     Dates: start: 20220311, end: 20220312
  5. DEXAMETHASONE SODIUM PHOSPHATE [Suspect]
     Active Substance: DEXAMETHASONE SODIUM PHOSPHATE
     Dosage: 5 MILLIGRAM, QOD
     Route: 042
     Dates: start: 20220316, end: 20220318
  6. OMEPRAZOLE [Concomitant]
     Active Substance: OMEPRAZOLE
     Indication: Prophylaxis
     Dosage: 40 MILLIGRAM, QD
     Route: 042
     Dates: start: 20210625, end: 20210703
  7. SODIUM BICARBONATE [Concomitant]
     Active Substance: SODIUM BICARBONATE
     Indication: Alkalosis
     Dosage: 500 MILLILITER, QD
     Route: 042
     Dates: start: 20210625, end: 20210703
  8. FOSAPREPITANT DIMEGLUMINE [Concomitant]
     Active Substance: FOSAPREPITANT DIMEGLUMINE
     Indication: Prophylaxis
     Dosage: 0.15 GRAM, QD
     Route: 050
     Dates: start: 20210625, end: 20210625
  9. PALONOSETRON [Concomitant]
     Active Substance: PALONOSETRON
     Indication: Prophylaxis
     Dosage: 0.25 MILLIGRAM, QD
     Route: 042
     Dates: start: 20210625, end: 20210625
  10. BACILLUS SUBTILIS;ENTEROCOCCUS FAECIUM [Concomitant]
     Indication: Constipation
     Dosage: 250 MILLIGRAM, TID
     Route: 048
     Dates: start: 20210624, end: 20210703
  11. DOXORUBICIN [Concomitant]
     Active Substance: DOXORUBICIN
     Indication: Plasma cell myeloma
     Dosage: 20 MILLIGRAM
     Route: 050
     Dates: start: 20210628, end: 20210629
  12. POMALIDOMIDE [Concomitant]
     Active Substance: POMALIDOMIDE
     Indication: Plasma cell myeloma
     Dosage: 4 MILLIGRAM, QD
     Route: 048
     Dates: start: 20210630, end: 20210703
  13. MOXALACTAM DISODIUM [Concomitant]
     Active Substance: MOXALACTAM DISODIUM
     Indication: Upper respiratory tract infection
     Dosage: 1.5 GRAM
     Route: 042
     Dates: start: 20210626, end: 20210703
  14. GANCICLOVIR [Concomitant]
     Active Substance: GANCICLOVIR
     Indication: Upper respiratory tract infection
     Dosage: 0.25 GRAM
     Route: 042
     Dates: start: 20210626, end: 20210703
  15. DEXRAZOXANE [Concomitant]
     Active Substance: DEXRAZOXANE
     Indication: Prophylaxis
     Dosage: 200 MILLIGRAM
     Route: 042
     Dates: start: 20210628, end: 20210629
  16. ASPIRIN [Concomitant]
     Active Substance: ASPIRIN
     Indication: Prophylaxis
     Dosage: 100 MILLIGRAM, QD
     Route: 048
     Dates: start: 20210630
  17. Lian hua qing wen [Concomitant]
     Indication: Prophylaxis
     Dosage: 6 GRAM, TID
     Route: 048
     Dates: start: 20210630, end: 20210703
  18. Lian hua qing wen [Concomitant]
     Dosage: 10 MILLIGRAM, QD
     Route: 042
     Dates: start: 20211211
  19. GLYCERIN [Concomitant]
     Active Substance: GLYCERIN
     Indication: Constipation
     Dosage: 20 MILLILITER
     Route: 054
     Dates: start: 20210628, end: 2021
  20. LACTULOSE [Concomitant]
     Active Substance: LACTULOSE
     Indication: Constipation
     Dosage: UNK
     Route: 048
     Dates: start: 20210628
  21. GRANULOCYTE COLONY-STIMULATING FACTOR NOS [Concomitant]
     Active Substance: GRANULOCYTE COLONY-STIMULATING FACTOR NOS
     Indication: Prophylaxis
     Dosage: 6 MILLIGRAM
     Route: 058
     Dates: start: 20210703, end: 20210703
  22. GLUTATHIONE [Concomitant]
     Active Substance: GLUTATHIONE
     Indication: Liver disorder
     Dosage: 1.8 GRAM, QD
     Route: 042
     Dates: start: 20210830, end: 20210916
  23. METHYLCOBALAMIN [Concomitant]
     Active Substance: METHYLCOBALAMIN
     Indication: Neuropathy peripheral
     Dosage: 500 MICROGRAM, QD
     Route: 042
     Dates: start: 20210623
  24. RIBOFLAVIN 5^-PHOSPHATE SODIUM ANHYDROUS [Concomitant]
     Active Substance: RIBOFLAVIN 5^-PHOSPHATE SODIUM ANHYDROUS
     Indication: Mucosal disorder
     Dosage: 20 MILLIGRAM, QD
     Route: 042
     Dates: start: 20210830, end: 20210916
  25. RINGERS SOLUTION [Concomitant]
     Active Substance: CALCIUM CHLORIDE\POTASSIUM CHLORIDE\SODIUM CHLORIDE
     Indication: Blood alkalinisation therapy
     Dosage: 500 MILLILITER, QD
     Route: 042
     Dates: start: 20210830, end: 20210916
  26. DEXTROSE\SODIUM CHLORIDE [Concomitant]
     Active Substance: DEXTROSE\SODIUM CHLORIDE
     Indication: Fluid replacement
     Dosage: 500 MILLILITER, QD
     Route: 042
     Dates: start: 20210830, end: 20210903
  27. METOPROLOL SUCCINATE [Concomitant]
     Active Substance: METOPROLOL SUCCINATE
     Indication: Arrhythmia
     Dosage: UNK
     Route: 048
     Dates: start: 20220322
  28. METOPROLOL SUCCINATE [Concomitant]
     Active Substance: METOPROLOL SUCCINATE
     Dosage: 47.5 MILLIGRAM
     Route: 048
     Dates: start: 20220329
  29. METHYLCOBALAMIN [Concomitant]
     Active Substance: METHYLCOBALAMIN
     Indication: Nerve injury
     Dosage: 0.5 MILLIGRAM, TID
     Route: 048
     Dates: start: 20220406
  30. DEXRAZOXANE [Concomitant]
     Active Substance: DEXRAZOXANE
     Indication: Cardiovascular event prophylaxis
     Dosage: 200 MILLIGRAM, QD
     Route: 042
     Dates: start: 20211211, end: 20211215

REACTIONS (26)
  - Cholecystitis [Not Recovered/Not Resolved]
  - Arrhythmia [Recovered/Resolved]
  - Lymphocyte count decreased [Not Recovered/Not Resolved]
  - White blood cell count decreased [Not Recovered/Not Resolved]
  - Neutrophil count decreased [Not Recovered/Not Resolved]
  - Platelet count decreased [Not Recovered/Not Resolved]
  - Anaemia [Not Recovered/Not Resolved]
  - Skin swelling [Recovering/Resolving]
  - Abdominal discomfort [Recovering/Resolving]
  - Decreased appetite [Recovering/Resolving]
  - Upper respiratory tract infection [Recovered/Resolved]
  - Nasal congestion [Recovered/Resolved]
  - Hypoglycaemia [Not Recovered/Not Resolved]
  - Hypersensitivity [Recovering/Resolving]
  - Gastrointestinal infection [Recovering/Resolving]
  - Asthenia [Not Recovered/Not Resolved]
  - Back pain [Not Recovered/Not Resolved]
  - Mouth ulceration [Recovering/Resolving]
  - Urine output decreased [Recovered/Resolved]
  - Respiratory tract infection [Recovering/Resolving]
  - Blood alkaline phosphatase increased [Not Recovered/Not Resolved]
  - Gamma-glutamyltransferase increased [Recovered/Resolved]
  - Alanine aminotransferase increased [Recovered/Resolved]
  - Aspartate aminotransferase increased [Recovered/Resolved]
  - Bilirubin conjugated increased [Recovered/Resolved]
  - Off label use [Unknown]

NARRATIVE: CASE EVENT DATE: 20210628
